FAERS Safety Report 6100532-4 (Version None)
Quarter: 2009Q1

REPORT INFORMATION
  Report Type: 
  Country: None (occurrence: None)
  Receive Date: 20090227
  Receipt Date: 20090227
  Transmission Date: 20090719
  Serious: No
  Sender: FDA-Public Use
  Company Number: None

PATIENT
  Age: 57 Year
  Sex: Female
  Weight: 84.369 kg

DRUGS (2)
  1. CLINDAMYCIN HCL [Suspect]
     Indication: TOOTH EXTRACTION
     Dosage: 2 3 TIMES DAY PO
     Route: 048
     Dates: start: 20080403, end: 20080410
  2. DAPSONE [Suspect]
     Indication: PEMPHIGOID
     Dosage: 1-2-1 2 TIMES DAY 1 WK, PO ABOUT 2 WEEKS
     Route: 048
     Dates: start: 20080826, end: 20080910

REACTIONS (2)
  - PANCREATITIS [None]
  - PEMPHIGOID [None]
